FAERS Safety Report 8434944-0 (Version None)
Quarter: 2012Q2

REPORT INFORMATION
  Report Type: 
  Country: None (occurrence: None)
  Receive Date: 20120614
  Receipt Date: 20120608
  Transmission Date: 20120825
  Serious: No
  Sender: FDA-Public Use
  Company Number: US-PFIZER INC-2012138801

PATIENT
  Sex: Female
  Weight: 56.689 kg

DRUGS (1)
  1. DEPO-PROVERA [Suspect]
     Indication: CONTRACEPTION
     Dosage: UNK
     Dates: start: 20120201

REACTIONS (3)
  - NECK PAIN [None]
  - FATIGUE [None]
  - NAUSEA [None]
